FAERS Safety Report 9286734 (Version 1)
Quarter: 2013Q2

REPORT INFORMATION
  Report Type: Spontaneous
  Country: CA (occurrence: CA)
  Receive Date: 20130513
  Receipt Date: 20130513
  Transmission Date: 20140414
  Serious: Yes (Other)
  Sender: FDA-Public Use
  Company Number: US-TARO-2013P1005462

PATIENT
  Age: 71 Year
  Sex: Female
  Weight: 65 kg

DRUGS (2)
  1. LUSTRA (HYDROQUINONE) [Suspect]
     Route: 061
     Dates: start: 2012, end: 201212
  2. UNSPECIFIED HYPERTENSION MEDICATIONS [Concomitant]

REACTIONS (2)
  - Benign neoplasm of skin [Recovered/Resolved]
  - Drug ineffective [Unknown]
